FAERS Safety Report 5906599-8 (Version None)
Quarter: 2008Q4

REPORT INFORMATION
  Report Type: 
  Country: None (occurrence: None)
  Receive Date: 20081002
  Receipt Date: 20080923
  Transmission Date: 20090506
  Serious: Yes (Hospitalization)
  Sender: FDA-Public Use
  Company Number: US-ELI_LILLY_AND_COMPANY-US200809005460

PATIENT
  Age: 70 Year
  Sex: Female

DRUGS (2)
  1. BYETTA [Suspect]
     Indication: TYPE 2 DIABETES MELLITUS
     Dosage: 5 UG, 2/D
     Route: 058
     Dates: start: 20070816, end: 20070920
  2. BYETTA [Suspect]
     Dosage: 10 UG, UNK
     Route: 058
     Dates: start: 20070920

REACTIONS (2)
  - CHOLELITHIASIS [None]
  - PANCREATITIS [None]
